FAERS Safety Report 25080681 (Version 1)
Quarter: 2025Q1

REPORT INFORMATION
  Report Type: Spontaneous
  Country: FR (occurrence: FR)
  Receive Date: 20250315
  Receipt Date: 20250315
  Transmission Date: 20250409
  Serious: Yes (Death, Congenital Anomaly, Other)
  Sender: UCB
  Company Number: None

PATIENT
  Sex: Female
  Weight: 0.787 kg

DRUGS (1)
  1. KEPPRA [Suspect]
     Active Substance: LEVETIRACETAM
     Indication: Epilepsy
     Dosage: 1500 MILLIGRAM, 2X/DAY (BID)
     Route: 064
     Dates: end: 20250203

REACTIONS (6)
  - Heart disease congenital [Fatal]
  - Congenital renal disorder [Fatal]
  - Congenital spinal cord anomaly [Fatal]
  - Low birth weight baby [Unknown]
  - Maternal exposure before pregnancy [Unknown]
  - Maternal exposure during pregnancy [Unknown]

NARRATIVE: CASE EVENT DATE: 20240101
